FAERS Safety Report 5542698-0 (Version None)
Quarter: 2007Q4

REPORT INFORMATION
  Report Type: 
  Country: None (occurrence: None)
  Receive Date: 20071210
  Receipt Date: 20071128
  Transmission Date: 20080405
  Serious: Yes (Life-Threatening)
  Sender: FDA-Public Use
  Company Number: JP-PFIZER INC-2007095427

PATIENT
  Sex: Female

DRUGS (5)
  1. CELECOX [Suspect]
     Indication: BACK PAIN
     Route: 048
     Dates: start: 20070925, end: 20071106
  2. MUCOSTA [Concomitant]
     Indication: BACK PAIN
     Dosage: TEXT:2 DF PER DAY
     Route: 048
     Dates: start: 20070209, end: 20071106
  3. RINLAXER [Concomitant]
     Indication: BACK PAIN
     Dosage: TEXT:2 DF PER DAY
     Route: 048
     Dates: start: 20070209, end: 20071106
  4. KETOPROFEN [Concomitant]
     Indication: OSTEOARTHRITIS
     Dates: start: 20070209, end: 20071106
  5. HYALURONIDASE [Concomitant]
     Indication: OSTEOARTHRITIS
     Dates: start: 20070209, end: 20071106

REACTIONS (1)
  - RHABDOMYOLYSIS [None]
